FAERS Safety Report 24399948 (Version 1)
Quarter: 2024Q4

REPORT INFORMATION
  Report Type: Spontaneous
  Country: FR (occurrence: FR)
  Receive Date: 20241005
  Receipt Date: 20241005
  Transmission Date: 20250115
  Serious: Yes (Hospitalization, Other)
  Sender: AUROBINDO
  Company Number: FR-AFSSAPS-NT2024001202

PATIENT
  Age: 47 Year
  Sex: Male
  Weight: 73 kg

DRUGS (1)
  1. IBUPROFEN [Suspect]
     Active Substance: IBUPROFEN
     Indication: Chest pain
     Dosage: 800 MILLIGRAM, ONCE A DAY,  400 MG X2/D
     Route: 048
     Dates: start: 20240826

REACTIONS (1)
  - Pleural infection bacterial [Recovered/Resolved]

NARRATIVE: CASE EVENT DATE: 20240909
